FAERS Safety Report 17814736 (Version 1)
Quarter: 2020Q2

REPORT INFORMATION
  Report Type: Spontaneous
  Country: US (occurrence: US)
  Receive Date: 20200522
  Receipt Date: 20200522
  Transmission Date: 20200714
  Serious: No
  Sender: FDA-Public Use
  Company Number: US-BAUSCH-BL-2020-014120

PATIENT
  Age: 82 Year
  Sex: Female

DRUGS (2)
  1. APRISO [Suspect]
     Active Substance: MESALAMINE
     Indication: PRODUCT USE IN UNAPPROVED INDICATION
     Route: 048
     Dates: start: 202003, end: 20200509
  2. APRISO [Suspect]
     Active Substance: MESALAMINE
     Indication: ILL-DEFINED DISORDER
     Dosage: AS PRESCRIBED FOR APPROXIMATELY 4 MONTHS
     Route: 048
     Dates: start: 2019, end: 2020

REACTIONS (2)
  - Product use in unapproved indication [Unknown]
  - Abdominal pain upper [Not Recovered/Not Resolved]

NARRATIVE: CASE EVENT DATE: 2019
